FAERS Safety Report 5442401-9 (Version None)
Quarter: 2007Q3

REPORT INFORMATION
  Report Type: 
  Country: None (occurrence: None)
  Receive Date: 20070904
  Receipt Date: 20070823
  Transmission Date: 20080115
  Serious: Yes (Hospitalization)
  Sender: FDA-Public Use
  Company Number: JP-PFIZER INC-2007069429

PATIENT
  Age: 60 Year
  Sex: Female
  Weight: 50 kg

DRUGS (6)
  1. VFEND [Suspect]
     Indication: MENINGITIS CRYPTOCOCCAL
     Route: 048
     Dates: start: 20070615, end: 20070615
  2. VFEND [Suspect]
     Route: 048
     Dates: start: 20070616, end: 20070616
  3. MAXIPIME [Concomitant]
     Indication: INFECTION
     Route: 042
     Dates: start: 20070615, end: 20070617
  4. METHOTREXATE [Concomitant]
     Route: 042
     Dates: start: 20070615, end: 20070615
  5. NORVASC [Concomitant]
     Route: 048
  6. MEROPEN [Concomitant]
     Indication: INFECTION
     Route: 042

REACTIONS (1)
  - INTERSTITIAL LUNG DISEASE [None]
